FAERS Safety Report 25244539 (Version 1)
Quarter: 2025Q2

REPORT INFORMATION
  Report Type: Spontaneous
  Country: US (occurrence: US)
  Receive Date: 20250428
  Receipt Date: 20250428
  Transmission Date: 20250717
  Serious: No
  Sender: ALKEM
  Company Number: US-ALKEM LABORATORIES LIMITED-US-ALKEM-2024-24405

PATIENT
  Age: 30 Week

DRUGS (1)
  1. SIROLIMUS [Suspect]
     Active Substance: SIROLIMUS
     Indication: Lymphatic malformation
     Dosage: 0.4 MILLIGRAM/SQ. METER, BID (EVERY 12 HOUR) (NASOGASTRIC TUBE)
     Route: 048

REACTIONS (2)
  - Drug level increased [Recovered/Resolved]
  - Soft tissue infection [Recovered/Resolved]
